FAERS Safety Report 9948664 (Version 1)
Quarter: 2014Q1

REPORT INFORMATION
  Report Type: Report from Study
  Country: US (occurrence: US)
  Receive Date: 20140303
  Receipt Date: 20140303
  Transmission Date: 20141002
  Serious: No
  Sender: FDA-Public Use
  Company Number: US-ABBVIE-13P-163-1063747-00

PATIENT
  Age: 37 Year
  Sex: Male

DRUGS (9)
  1. HUMIRA [Suspect]
     Indication: CROHN^S DISEASE
     Dosage: DAY 1
     Dates: start: 20130213, end: 20130213
  2. HUMIRA [Suspect]
     Dosage: DAY 15
     Dates: start: 20130228, end: 20130228
  3. HUMIRA [Suspect]
  4. LORTAB [Concomitant]
     Indication: PAIN
     Dosage: 2 TABLETS EVERY 4 HOURS AS NEEDED
  5. SOMA [Concomitant]
     Indication: MUSCLE RELAXANT THERAPY
     Dosage: THREE TIMES A DAY AS NEEDED
  6. XANAX [Concomitant]
     Indication: ANXIETY
     Dosage: AT BEDTIME AS NEEDED
  7. XANAX [Concomitant]
     Indication: INSOMNIA
  8. PREDNISONE [Concomitant]
     Indication: PRODUCT USED FOR UNKNOWN INDICATION
     Dosage: 5 MG DAILY
  9. PERCOCET [Concomitant]
     Indication: BREAKTHROUGH PAIN

REACTIONS (4)
  - Drug dose omission [Unknown]
  - Abdominal pain [Not Recovered/Not Resolved]
  - Nausea [Not Recovered/Not Resolved]
  - Gastroenteritis viral [Unknown]
